FAERS Safety Report 18825321 (Version 1)
Quarter: 2021Q1

REPORT INFORMATION
  Report Type: Spontaneous
  Country: TW (occurrence: TW)
  Receive Date: 20210202
  Receipt Date: 20210202
  Transmission Date: 20210419
  Serious: Yes (Other)
  Sender: FDA-Public Use
  Company Number: TW-BAYER-2021-044368

PATIENT
  Sex: Female

DRUGS (1)
  1. MIRENA [Suspect]
     Active Substance: LEVONORGESTREL
     Dosage: 20?G PER DAY,CONTINUOUSLY
     Route: 015
     Dates: start: 2017

REACTIONS (2)
  - Device breakage [None]
  - Suspected product quality issue [None]

NARRATIVE: CASE EVENT DATE: 202101
